FAERS Safety Report 9631403 (Version 1)
Quarter: 2013Q4

REPORT INFORMATION
  Report Type: Spontaneous
  Country: FR (occurrence: FR)
  Receive Date: 20131018
  Receipt Date: 20131018
  Transmission Date: 20140711
  Serious: Yes (Hospitalization)
  Sender: FDA-Public Use
  Company Number: FR-PFIZER INC-2013295686

PATIENT
  Age: 73 Year
  Sex: Female

DRUGS (7)
  1. ALDACTONE [Suspect]
     Indication: HYPERTENSION
     Dosage: 75 MG, 1X/DAY
     Route: 048
     Dates: end: 20130807
  2. AMLODIPINE [Suspect]
     Indication: HYPERTENSION
     Dosage: 5 MG, 1X/DAY
     Route: 048
     Dates: end: 20130807
  3. SECTRAL [Suspect]
     Indication: HYPERTENSION
     Dosage: 100 MG, 2X/DAY
     Route: 048
     Dates: end: 20130807
  4. COVERSYL [Suspect]
     Indication: HYPERTENSION
     Dosage: 10 MG, 1X/DAY
     Route: 048
     Dates: end: 20130807
  5. INEXIUM [Concomitant]
     Dosage: 20 MG, 1X/DAY
  6. PREVISCAN [Concomitant]
     Indication: INTERNATIONAL NORMALISED RATIO ABNORMAL
     Dosage: UNK
  7. PROZAC [Concomitant]
     Dosage: 20 MG, 1X/DAY

REACTIONS (3)
  - Sinus bradycardia [Recovered/Resolved]
  - Renal failure acute [Unknown]
  - Diarrhoea [Unknown]
